FAERS Safety Report 21522010 (Version 1)
Quarter: 2022Q4

REPORT INFORMATION
  Report Type: Report from Study
  Country: US (occurrence: US)
  Receive Date: 20221028
  Receipt Date: 20221028
  Transmission Date: 20230113
  Serious: No
  Sender: FDA-Public Use
  Company Number: US-ABBVIE-4166522

PATIENT
  Sex: Male

DRUGS (20)
  1. SKYRIZI [Suspect]
     Active Substance: RISANKIZUMAB-RZAA
     Indication: Psoriasis
     Dosage: FORM STRENGTH 150 MILLIGRAM
     Route: 058
  2. FAMOTIDINE TAB 20MG [Concomitant]
     Indication: Product used for unknown indication
  3. DULOXETINE CAP 60MG [Concomitant]
     Indication: Product used for unknown indication
  4. DULOXETINE CAP 40MG [Concomitant]
     Indication: Product used for unknown indication
  5. BUSPIRONE TAB 15MG [Concomitant]
     Indication: Product used for unknown indication
  6. FENOFIBRATE TAB 160MG [Concomitant]
     Indication: Product used for unknown indication
  7. FOLIC ACID TAB 1000MCG [Concomitant]
     Indication: Product used for unknown indication
  8. LIALDA [Concomitant]
     Active Substance: MESALAMINE
     Indication: Product used for unknown indication
  9. METHOTREXATE [Concomitant]
     Active Substance: METHOTREXATE
     Indication: Product used for unknown indication
  10. ROSUVASTATIN [Concomitant]
     Active Substance: ROSUVASTATIN
     Indication: Product used for unknown indication
  11. RAMIPRIL CAP 2.5MG [Concomitant]
     Indication: Product used for unknown indication
  12. TOPIRAMATE TAB 100MG [Concomitant]
     Indication: Product used for unknown indication
  13. ASPIRIN LOW TAB 81MG EC [Concomitant]
     Indication: Product used for unknown indication
  14. METOPROL TAR TAB 25MG [Concomitant]
     Indication: Product used for unknown indication
  15. VITAMIN D TAB 1000UNIT [Concomitant]
     Indication: Product used for unknown indication
  16. DIVALPROEX TAB 500MG DR [Concomitant]
     Indication: Product used for unknown indication
  17. DRISDOL CAP 50000UNT [Concomitant]
     Indication: Product used for unknown indication
  18. CLOBETASOL E CRE 0.05% [Concomitant]
     Indication: Product used for unknown indication
  19. FUROSEMIDE TAB 40MG [Concomitant]
     Indication: Product used for unknown indication
  20. KLOR-CON M20 TAB 20MEQ ER [Concomitant]
     Indication: Product used for unknown indication

REACTIONS (3)
  - Psoriasis [Not Recovered/Not Resolved]
  - Pain [Not Recovered/Not Resolved]
  - Pain in extremity [Not Recovered/Not Resolved]
